FAERS Safety Report 8716444 (Version 2)
Quarter: 2013Q4

REPORT INFORMATION
  Report Type: Spontaneous
  Country: US (occurrence: US)
  Receive Date: 20120810
  Receipt Date: 20131101
  Transmission Date: 20140711
  Serious: No
  Sender: FDA-Public Use
  Company Number: US-009507513-1208USA000487

PATIENT
  Age: 59 Year
  Sex: Male

DRUGS (2)
  1. PEGINTRON [Suspect]
     Indication: HEPATITIS C
     Dosage: UNK UNK, QW
     Dates: start: 20120727
  2. REBETOL [Suspect]
     Dosage: UNK
     Route: 048

REACTIONS (4)
  - Oral herpes [Not Recovered/Not Resolved]
  - Ageusia [Not Recovered/Not Resolved]
  - Chills [Recovered/Resolved]
  - Decreased appetite [Recovering/Resolving]
